FAERS Safety Report 15635932 (Version 4)
Quarter: 2019Q2

REPORT INFORMATION
  Report Type: Spontaneous
  Country: US (occurrence: US)
  Receive Date: 20181120
  Receipt Date: 20190513
  Transmission Date: 20190711
  Serious: Yes (Other)
  Sender: FDA-Public Use
  Company Number: US-JNJFOC-20181113187

PATIENT
  Sex: Male
  Weight: 96.62 kg

DRUGS (5)
  1. ELIGARD [Concomitant]
     Active Substance: LEUPROLIDE ACETATE
     Route: 065
  2. ERLEADA [Suspect]
     Active Substance: APALUTAMIDE
     Indication: PROSTATE CANCER
     Dosage: FOUR 60 MG TABLETS ADMINISTERED ONCE DAILY
     Route: 048
     Dates: start: 20181017
  3. DOCUSATE [Concomitant]
     Active Substance: DOCUSATE
     Route: 065
  4. BICALUTAMIDE. [Concomitant]
     Active Substance: BICALUTAMIDE
     Route: 065
  5. ATORVASTATIN [Concomitant]
     Active Substance: ATORVASTATIN
     Route: 065

REACTIONS (6)
  - Prostatic specific antigen increased [Unknown]
  - Night sweats [Unknown]
  - Pruritus [Unknown]
  - Sleep deficit [Unknown]
  - Urticaria [Unknown]
  - Hot flush [Unknown]
